FAERS Safety Report 8171297-X (Version None)
Quarter: 2012Q1

REPORT INFORMATION
  Report Type: 
  Country: None (occurrence: None)
  Receive Date: 20120228
  Receipt Date: 20120223
  Transmission Date: 20120608
  Serious: Yes (Death, Hospitalization)
  Sender: FDA-Public Use
  Company Number: TW-MERCK-1202USA03582

PATIENT
  Age: 18 Week
  Sex: Female
  Weight: 1 kg

DRUGS (2)
  1. CANCIDAS [Suspect]
     Indication: CANDIDIASIS
     Route: 042
  2. CANCIDAS [Suspect]
     Route: 042

REACTIONS (4)
  - DEATH [None]
  - HYPERKALAEMIA [None]
  - CHOLESTASIS [None]
  - RENAL FAILURE ACUTE [None]
